FAERS Safety Report 6927663-0 (Version None)
Quarter: 2010Q3

REPORT INFORMATION
  Report Type: 
  Country: None (occurrence: None)
  Receive Date: 20100817
  Receipt Date: 20100524
  Transmission Date: 20110219
  Serious: Yes (Life-Threatening, Disabling)
  Sender: FDA-Public Use
  Company Number: A0861050A

PATIENT
  Sex: Male

DRUGS (4)
  1. VOTRIENT [Suspect]
     Route: 048
  2. UNKNOWN MEDICATION [Concomitant]
  3. LASIX [Concomitant]
  4. UNKNOWN MEDICATION [Concomitant]
     Indication: HYPERTENSION

REACTIONS (1)
  - BLOOD PRESSURE INCREASED [None]
